FAERS Safety Report 5187192-4 (Version None)
Quarter: 2006Q4

REPORT INFORMATION
  Report Type: 
  Country: None (occurrence: None)
  Receive Date: 20061212
  Receipt Date: 20061128
  Transmission Date: 20070319
  Serious: Yes (Death, Other)
  Sender: FDA-Public Use
  Company Number: 2006BH014854

PATIENT
  Age: 75 Year
  Sex: Female
  Weight: 66.8 kg

DRUGS (7)
  1. DIANEAL [Suspect]
     Indication: RENAL FAILURE CHRONIC
     Dosage: 5 L; IP
     Route: 033
  2. DIANEAL PD-2 W/ DEXTROSE 1.5% [Suspect]
     Indication: RENAL FAILURE CHRONIC
     Dosage: IP
     Route: 033
  3. EXTRANEAL [Suspect]
     Indication: RENAL FAILURE CHRONIC
     Dosage: IP
     Route: 033
  4. LABETALOL HCL [Concomitant]
  5. PROCARDIA [Concomitant]
  6. DIOVAN [Concomitant]
  7. EPOGEN [Concomitant]

REACTIONS (7)
  - BACK PAIN [None]
  - CARDIAC ARREST [None]
  - CONSTIPATION [None]
  - DEHYDRATION [None]
  - DYSPNOEA [None]
  - FALL [None]
  - PAIN IN EXTREMITY [None]
